FAERS Safety Report 15928439 (Version 2)
Quarter: 2020Q4

REPORT INFORMATION
  Report Type: Report from Study
  Country: US (occurrence: US)
  Receive Date: 20190206
  Receipt Date: 20201021
  Transmission Date: 20210113
  Serious: Yes (Other)
  Sender: FDA-Public Use
  Company Number: US-009507513-1901USA012283

PATIENT
  Age: 84 Year
  Sex: Male

DRUGS (1)
  1. KEYTRUDA [Suspect]
     Active Substance: PEMBROLIZUMAB
     Indication: CHOLANGIOCARCINOMA
     Dosage: 200 MILLIGRAM EVERY 21 DAYS
     Route: 042
     Dates: start: 20180216, end: 202001

REACTIONS (3)
  - Product use in unapproved indication [Unknown]
  - Papillary cystadenoma lymphomatosum [Unknown]
  - Autoimmune arthritis [Unknown]

NARRATIVE: CASE EVENT DATE: 2018
